FAERS Safety Report 6474199-X (Version None)
Quarter: 2009Q4

REPORT INFORMATION
  Report Type: 
  Country: None (occurrence: None)
  Receive Date: 20091204
  Receipt Date: 20091125
  Transmission Date: 20100525
  Serious: Yes (Death, Life-Threatening, Hospitalization, Other)
  Sender: FDA-Public Use
  Company Number: US-PFIZER INC-2009274951

PATIENT
  Sex: Male
  Weight: 76.2 kg

DRUGS (4)
  1. SUTENT [Suspect]
     Indication: METASTATIC RENAL CELL CARCINOMA
     Dosage: 50 MG, 1X/DAY
     Route: 048
     Dates: start: 20090724, end: 20090806
  2. SUTENT [Suspect]
     Route: 048
     Dates: start: 20090724, end: 20090806
  3. ZOLEDRONIC ACID [Concomitant]
     Dosage: 3.3 MG, UNK
     Route: 042
     Dates: start: 20090709, end: 20090723
  4. ZOLEDRONIC ACID [Concomitant]
     Dates: start: 20090709, end: 20090723

REACTIONS (6)
  - DEATH [None]
  - DIARRHOEA [None]
  - DYSPNOEA [None]
  - MUCOSAL INFLAMMATION [None]
  - PLEURAL EFFUSION [None]
  - RENAL FAILURE ACUTE [None]
